FAERS Safety Report 12568668 (Version 1)
Quarter: 2016Q3

REPORT INFORMATION
  Report Type: Spontaneous
  Country: US (occurrence: None)
  Receive Date: 20160718
  Receipt Date: 20160718
  Transmission Date: 20161109
  Serious: Yes (Other)
  Sender: FDA-Public Use
  Company Number: None

PATIENT

DRUGS (1)
  1. LINZESS [Suspect]
     Active Substance: LINACLOTIDE

REACTIONS (10)
  - Vomiting [None]
  - Constipation [None]
  - Condition aggravated [None]
  - Gastric disorder [None]
  - Abdominal distension [None]
  - Weight decreased [None]
  - Nausea [None]
  - Abdominal pain upper [None]
  - Feeding disorder [None]
  - Asthenia [None]

NARRATIVE: CASE EVENT DATE: 20160714
